FAERS Safety Report 12283900 (Version 1)
Quarter: 2016Q2

REPORT INFORMATION
  Report Type: Spontaneous
  Country: US (occurrence: US)
  Receive Date: 20160419
  Receipt Date: 20160419
  Transmission Date: 20160815
  Serious: No
  Sender: FDA-Public Use
  Company Number: US-BANPHARM-20154420

PATIENT
  Age: 51 Year
  Sex: Female
  Weight: 79.38 kg

DRUGS (6)
  1. ALEVE [Suspect]
     Active Substance: NAPROXEN SODIUM
     Indication: HEADACHE
     Dosage: 1 DF, ONCE,
     Route: 048
  2. ASTHMA INHALER [Concomitant]
     Active Substance: UNSPECIFIED INGREDIENT
  3. E.S.BAYER BACK + BODY ASPIRIN [Concomitant]
     Dosage: 1 DF, QD,
  4. GENUINE BAYER ASPIRIN 325 MG [Concomitant]
     Indication: OVULATION PAIN
     Dosage: 1 DF, QD,
  5. BLOOD PRESSURE MEDICATION [Concomitant]
     Active Substance: UNSPECIFIED INGREDIENT
  6. PROVENTIL [Concomitant]
     Active Substance: ALBUTEROL

REACTIONS (1)
  - Drug ineffective [Unknown]
